FAERS Safety Report 8078487-5 (Version None)
Quarter: 2012Q1

REPORT INFORMATION
  Report Type: 
  Country: None (occurrence: None)
  Receive Date: 20120123
  Receipt Date: 20120114
  Transmission Date: 20120608
  Serious: No
  Sender: FDA-Public Use
  Company Number: 2012-00012

PATIENT
  Age: 61 Year
  Sex: Female

DRUGS (2)
  1. ZICAM RAPIDMELTS WITH ECHINACESA [Suspect]
     Indication: NASOPHARYNGITIS
     Dosage: 1 RAPIDMELT TWICE DAILY
     Dates: start: 20120106, end: 20120108
  2. ZICAM COLD REMEDY RAPIDMELTS [Suspect]
     Indication: NASOPHARYNGITIS
     Dosage: 1 RAPIDMELT TWICE DAILY
     Dates: start: 20120101, end: 20120105

REACTIONS (2)
  - GLOSSODYNIA [None]
  - AGEUSIA [None]
